FAERS Safety Report 5889852-6 (Version None)
Quarter: 2008Q3

REPORT INFORMATION
  Report Type: 
  Country: None (occurrence: None)
  Receive Date: 20080919
  Receipt Date: 20080910
  Transmission Date: 20090109
  Serious: Yes (Hospitalization, Other)
  Sender: FDA-Public Use
  Company Number: US-ROCHE-432816

PATIENT
  Sex: Female
  Weight: 53.1 kg

DRUGS (5)
  1. ACCUTANE [Suspect]
     Dosage: ONE DAY 40MG TWICE DAILY AND THE NEXT DAY 40 MG DAILY.
     Route: 048
     Dates: start: 19990302, end: 19990402
  2. ACCUTANE [Suspect]
     Dosage: ONE DAY 40MG TWICE DAILY AND THE NEXT DAY 40 MG DAILY.
     Route: 048
     Dates: start: 20000814, end: 20001004
  3. ORTHO TRI-CYCLEN [Concomitant]
  4. TRIPHASIL-21 [Concomitant]
  5. IBUPROFEN [Concomitant]

REACTIONS (17)
  - ABDOMINAL PAIN [None]
  - ABNORMAL FAECES [None]
  - ACNE [None]
  - ANAEMIA [None]
  - ANAL FISTULA [None]
  - ANXIETY [None]
  - ARTHRITIS [None]
  - COLITIS ULCERATIVE [None]
  - DEPRESSION [None]
  - FREQUENT BOWEL MOVEMENTS [None]
  - INFERTILITY [None]
  - INFLAMMATORY BOWEL DISEASE [None]
  - LIP DRY [None]
  - PROCTITIS [None]
  - RECTAL HAEMORRHAGE [None]
  - SPONDYLITIS [None]
  - URINARY TRACT INFECTION [None]
